FAERS Safety Report 5239867-6 (Version None)
Quarter: 2007Q1

REPORT INFORMATION
  Report Type: 
  Country: None (occurrence: None)
  Receive Date: 20070214
  Receipt Date: 20070214
  Transmission Date: 20070707
  Serious: Yes (Other)
  Sender: FDA-Public Use
  Company Number: None

PATIENT
  Age: 43 Year
  Sex: Male
  Weight: 113.3993 kg

DRUGS (6)
  1. GEODON [Suspect]
     Indication: SCHIZOPHRENIA
     Dosage: 80 MG TWICW DAILY
     Dates: start: 20020820, end: 20070212
  2. ASPIRIN [Concomitant]
  3. GLIPIZIDE [Concomitant]
  4. METFORMIN HCL [Concomitant]
  5. LISINOPRIL [Concomitant]
  6. SIMVASTATIN [Concomitant]

REACTIONS (5)
  - ANXIETY [None]
  - DRUG DEPENDENCE [None]
  - FEELING ABNORMAL [None]
  - FEELING COLD [None]
  - SENSATION OF HEAVINESS [None]
